FAERS Safety Report 4395417-8 (Version None)
Quarter: 2004Q3

REPORT INFORMATION
  Report Type: 
  Country: None (occurrence: None)
  Receive Date: 20040712
  Receipt Date: 20040712
  Transmission Date: 20050211
  Serious: No
  Sender: FDA-Public Use
  Company Number: None

PATIENT
  Age: 57 Year
  Sex: Female
  Weight: 65.5 kg

DRUGS (1)
  1. CEFAZOLIN [Suspect]
     Dosage: 2 GM
     Dates: start: 20040428, end: 20040428

REACTIONS (2)
  - ANAPHYLACTIC REACTION [None]
  - RASH [None]
